APPROVED DRUG PRODUCT: SAPROPTERIN DIHYDROCHLORIDE
Active Ingredient: SAPROPTERIN DIHYDROCHLORIDE
Strength: 100MG
Dosage Form/Route: TABLET;ORAL
Application: A215534 | Product #001 | TE Code: AB
Applicant: ANNORA PHARMA PRIVATE LTD
Approved: Aug 23, 2022 | RLD: No | RS: No | Type: RX